FAERS Safety Report 7744394-8 (Version None)
Quarter: 2011Q3

REPORT INFORMATION
  Report Type: 
  Country: None (occurrence: None)
  Receive Date: 20110912
  Receipt Date: 20110831
  Transmission Date: 20111222
  Serious: Yes (Hospitalization)
  Sender: FDA-Public Use
  Company Number: PHHY2011RO77965

PATIENT
  Age: 3 Year
  Sex: Male

DRUGS (1)
  1. ACETYLSALICYLIC ACID SRT [Suspect]
     Indication: HYPERTHERMIA

REACTIONS (7)
  - MELAENA [None]
  - HAEMATEMESIS [None]
  - PEPTIC ULCER [None]
  - HAEMORRHAGIC ANAEMIA [None]
  - VOMITING [None]
  - DEHYDRATION [None]
  - OBSTRUCTION GASTRIC [None]
